FAERS Safety Report 23088862 (Version 1)
Quarter: 2023Q4

REPORT INFORMATION
  Report Type: Spontaneous
  Country: LV (occurrence: LV)
  Receive Date: 20231020
  Receipt Date: 20231020
  Transmission Date: 20240109
  Serious: Yes (Hospitalization)
  Sender: FDA-Public Use
  Company Number: LV-STRIDES ARCOLAB LIMITED-2023SP015841

PATIENT
  Age: 22 Year
  Sex: Male

DRUGS (36)
  1. DIAZEPAM [Suspect]
     Active Substance: DIAZEPAM
     Indication: Schizophrenia
     Dosage: 20 MILLIGRAM PER DAY
     Route: 030
     Dates: start: 202003
  2. DIAZEPAM [Suspect]
     Active Substance: DIAZEPAM
     Dosage: 30 MILLIGRAM PER DAY
     Route: 065
     Dates: start: 202104
  3. DIAZEPAM [Suspect]
     Active Substance: DIAZEPAM
     Dosage: 15 MILLIGRAM PER DAY
     Route: 065
     Dates: start: 202105
  4. ALPRAZOLAM [Suspect]
     Active Substance: ALPRAZOLAM
     Indication: Schizophrenia
     Dosage: 3 MILLIGRAM PER DAY (UP TO 3MG/DAY)
     Dates: start: 202109
  5. ALPRAZOLAM [Suspect]
     Active Substance: ALPRAZOLAM
     Dosage: UNK
     Route: 065
     Dates: start: 202110
  6. BUSPIRONE HYDROCHLORIDE [Suspect]
     Active Substance: BUSPIRONE HYDROCHLORIDE
     Indication: Schizophrenia
     Dosage: 30 MILLIGRAM PER DAY
     Route: 065
     Dates: start: 202109
  7. BUSPIRONE HYDROCHLORIDE [Suspect]
     Active Substance: BUSPIRONE HYDROCHLORIDE
     Dosage: 30 MILLIGRAM PER DAY
     Route: 065
     Dates: start: 202110
  8. BUSPIRONE HYDROCHLORIDE [Suspect]
     Active Substance: BUSPIRONE HYDROCHLORIDE
     Dosage: 30 MILLIGRAM PER DAY
     Route: 065
     Dates: start: 202111
  9. BUSPIRONE HYDROCHLORIDE [Suspect]
     Active Substance: BUSPIRONE HYDROCHLORIDE
     Dosage: UNK (CAR 6MG/D+OLA 20MG DOWN-TITRATION OF BUSPIRONE)
     Route: 065
     Dates: start: 202112
  10. HALOPERIDOL [Suspect]
     Active Substance: HALOPERIDOL
     Indication: Schizophrenia
     Dosage: 15 MILLIGRAM PER DAY
     Route: 030
     Dates: start: 202003
  11. HALOPERIDOL [Suspect]
     Active Substance: HALOPERIDOL
     Dosage: 15 MILLIGRAM PER DAY
     Route: 065
     Dates: start: 202104
  12. HALOPERIDOL [Suspect]
     Active Substance: HALOPERIDOL
     Dosage: 15 MILLIGRAM PER DAY
     Route: 065
     Dates: start: 202104
  13. HALOPERIDOL [Suspect]
     Active Substance: HALOPERIDOL
     Dosage: 7.5 MILLIGRAM PER DAY
     Route: 065
     Dates: start: 202104
  14. HALOPERIDOL [Suspect]
     Active Substance: HALOPERIDOL
     Dosage: 15 MILLIGRAM PER DAY
     Route: 065
     Dates: start: 202105
  15. HALOPERIDOL [Suspect]
     Active Substance: HALOPERIDOL
     Dosage: 7.5 MILLIGRAM PER DAY
     Route: 065
     Dates: start: 202104
  16. OLANZAPINE [Suspect]
     Active Substance: OLANZAPINE
     Indication: Schizophrenia
     Dosage: 10 MILLIGRAM PER DAY
     Route: 065
     Dates: start: 202104
  17. OLANZAPINE [Suspect]
     Active Substance: OLANZAPINE
     Dosage: 20 MILLIGRAM PER DAY
     Route: 065
     Dates: start: 202104
  18. OLANZAPINE [Suspect]
     Active Substance: OLANZAPINE
     Dosage: 20 MILLIGRAM PER DAY
     Route: 065
     Dates: start: 202105
  19. OLANZAPINE [Suspect]
     Active Substance: OLANZAPINE
     Dosage: 20 MILLIGRAM PER DAY
     Route: 065
     Dates: start: 202105
  20. OLANZAPINE [Suspect]
     Active Substance: OLANZAPINE
     Dosage: 20 MILLIGRAM PER DAY
     Route: 065
     Dates: start: 202106
  21. OLANZAPINE [Suspect]
     Active Substance: OLANZAPINE
     Dosage: 20 MILLIGRAM PER DAY
     Route: 065
     Dates: start: 202107
  22. OLANZAPINE [Suspect]
     Active Substance: OLANZAPINE
     Dosage: 20 MILLIGRAM PER DAY
     Route: 065
     Dates: start: 202109
  23. OLANZAPINE [Suspect]
     Active Substance: OLANZAPINE
     Dosage: 20 MILLIGRAM PER DAY
     Route: 065
     Dates: start: 202110
  24. OLANZAPINE [Suspect]
     Active Substance: OLANZAPINE
     Dosage: 20 MILLIGRAM PER DAY
     Route: 065
     Dates: start: 202111
  25. OLANZAPINE [Suspect]
     Active Substance: OLANZAPINE
     Dosage: 20 MILLIGRAM
     Route: 065
     Dates: start: 202212
  26. OLANZAPINE [Suspect]
     Active Substance: OLANZAPINE
     Dosage: 10 MILLIGRAM PER DAY
     Route: 065
     Dates: start: 202301
  27. OLANZAPINE [Suspect]
     Active Substance: OLANZAPINE
     Dosage: 10 MILLIGRAM PER DAY
     Route: 065
     Dates: start: 202302
  28. RISPERIDONE [Suspect]
     Active Substance: RISPERIDONE
     Indication: Schizophrenia
     Dosage: 4 MILLIGRAM (PER DAY)
     Route: 065
     Dates: start: 202003
  29. RISPERIDONE [Suspect]
     Active Substance: RISPERIDONE
     Dosage: 6 MILLIGRAM (PER DAY)
     Route: 065
     Dates: start: 202106
  30. RISPERIDONE [Suspect]
     Active Substance: RISPERIDONE
     Dosage: 6 MILLIGRAM (PER DAY)
     Route: 065
     Dates: start: 202106
  31. RISPERIDONE [Suspect]
     Active Substance: RISPERIDONE
     Dosage: 6 MILLIGRAM (PER DAY)
     Route: 065
     Dates: start: 202107
  32. RISPERIDONE [Suspect]
     Active Substance: RISPERIDONE
     Dosage: 6 MILLIGRAM (PER DAY)
     Route: 065
     Dates: start: 202109
  33. RISPERIDONE [Suspect]
     Active Substance: RISPERIDONE
     Dosage: UNK
     Route: 065
     Dates: start: 202110
  34. QUETIAPINE [Suspect]
     Active Substance: QUETIAPINE
     Indication: Schizophrenia
     Dosage: 50 MILLIGRAM PER DAY (AT BEDTIME)
     Route: 065
     Dates: start: 202104
  35. QUETIAPINE [Suspect]
     Active Substance: QUETIAPINE
     Dosage: 50 MILLIGRAM PER DAY (AT BEDTIME)
     Route: 065
     Dates: start: 202107
  36. ARIPIPRAZOLE [Concomitant]
     Active Substance: ARIPIPRAZOLE
     Indication: Schizophrenia
     Dosage: 15 MILLIGRAM
     Route: 065

REACTIONS (4)
  - Parkinsonism [Unknown]
  - Drug ineffective [Unknown]
  - Therapy partial responder [Unknown]
  - Off label use [Unknown]
